FAERS Safety Report 18203576 (Version 1)
Quarter: 2020Q3

REPORT INFORMATION
  Report Type: Spontaneous
  Country: IT (occurrence: IT)
  Receive Date: 20200827
  Receipt Date: 20200827
  Transmission Date: 20201103
  Serious: Yes (Hospitalization)
  Sender: FDA-Public Use
  Company Number: IT-COVIS PHARMA B.V.-2020COV00375

PATIENT
  Age: 71 Year
  Sex: Female

DRUGS (1)
  1. RILUZOLE. [Suspect]
     Active Substance: RILUZOLE
     Indication: AMYOTROPHIC LATERAL SCLEROSIS
     Dosage: 50 MG, 2X/DAY
     Route: 048

REACTIONS (1)
  - Pancreatitis [Recovered/Resolved]
